FAERS Safety Report 5480212-9 (Version None)
Quarter: 2007Q4

REPORT INFORMATION
  Report Type: 
  Country: None (occurrence: None)
  Receive Date: 20071009
  Receipt Date: 20070814
  Transmission Date: 20080405
  Serious: Yes (Hospitalization, Other)
  Sender: FDA-Public Use
  Company Number: US-PURDUE-USA_2007_0029010

PATIENT
  Sex: Male
  Weight: 117 kg

DRUGS (5)
  1. OXYCONTIN [Suspect]
     Indication: PAIN
     Dosage: 10 MG, SEE TEXT
     Dates: start: 19991222, end: 20050201
  2. OXYIR [Concomitant]
     Indication: BREAKTHROUGH PAIN
     Dosage: 1 TABLET, TID
  3. ATIVAN [Concomitant]
     Dosage: 1 TABLET, DAILY
  4. BACTRIM [Concomitant]
     Dosage: 3 TABLET, DAILY
  5. NEURONTIN [Concomitant]
     Dosage: 3 TABLET, DAILY

REACTIONS (11)
  - ABDOMINAL WOUND DEHISCENCE [None]
  - BEDRIDDEN [None]
  - DRUG ABUSER [None]
  - DRUG DEPENDENCE [None]
  - DRUG WITHDRAWAL SYNDROME [None]
  - LIBIDO DECREASED [None]
  - MALAISE [None]
  - MYOCARDIAL INFARCTION [None]
  - PAIN [None]
  - SURGERY [None]
  - TOOTH LOSS [None]
